FAERS Safety Report 15359572 (Version 4)
Quarter: 2019Q3

REPORT INFORMATION
  Report Type: Spontaneous
  Country: AR (occurrence: AR)
  Receive Date: 20180907
  Receipt Date: 20190813
  Transmission Date: 20191004
  Serious: Yes (Other)
  Sender: FDA-Public Use
  Company Number: AR-ASTELLAS-2018US039620

PATIENT
  Age: 78 Year
  Sex: Female

DRUGS (9)
  1. ASPIRIN. [Concomitant]
     Active Substance: ASPIRIN
     Indication: PRODUCT USED FOR UNKNOWN INDICATION
     Dosage: UNK UNK, UNKNOWN FREQ.
     Route: 065
  2. LEVOTHYROXINE. [Concomitant]
     Active Substance: LEVOTHYROXINE
     Indication: HYPOTHYROIDISM
     Dosage: DOSE: 135MG ODD DAYS AND 125 PAIRS
     Route: 065
     Dates: start: 20180318
  3. ATENOLOL. [Concomitant]
     Active Substance: ATENOLOL
     Indication: PRODUCT USED FOR UNKNOWN INDICATION
     Route: 065
  4. CLONAZEPAM. [Concomitant]
     Active Substance: CLONAZEPAM
     Indication: INSOMNIA
     Dosage: UNK UNK, UNKNOWN FREQ.
     Route: 065
  5. OMEPRAZOLE. [Concomitant]
     Active Substance: OMEPRAZOLE
     Indication: PRODUCT USED FOR UNKNOWN INDICATION
     Route: 065
  6. CLOPIDOGREL [Concomitant]
     Active Substance: CLOPIDOGREL BISULFATE
     Indication: PRODUCT USED FOR UNKNOWN INDICATION
     Dosage: UNK UNK, UNKNOWN FREQ.
     Route: 065
  7. ERLOTINIB [Interacting]
     Active Substance: ERLOTINIB
     Route: 065
     Dates: start: 20180316
  8. HYDROXYUREA. [Concomitant]
     Active Substance: HYDROXYUREA
     Indication: PRODUCT USED FOR UNKNOWN INDICATION
     Dosage: UNK UNK, UNKNOWN FREQ.
     Route: 065
  9. ERLOTINIB [Suspect]
     Active Substance: ERLOTINIB
     Indication: LUNG NEOPLASM MALIGNANT
     Route: 065
     Dates: start: 20180218

REACTIONS (24)
  - Drug-disease interaction [Not Recovered/Not Resolved]
  - Nail disorder [Unknown]
  - Platelet count increased [Not Recovered/Not Resolved]
  - Pain [Not Recovered/Not Resolved]
  - Furuncle [Not Recovered/Not Resolved]
  - Wound complication [Unknown]
  - Hair disorder [Unknown]
  - Haemorrhage [Recovered/Resolved]
  - Rash [Unknown]
  - Madarosis [Unknown]
  - Chest pain [Unknown]
  - Limb injury [Not Recovered/Not Resolved]
  - Ill-defined disorder [Unknown]
  - Cough [Unknown]
  - Fatigue [Unknown]
  - Onychomycosis [Recovered/Resolved]
  - Vulvovaginal pruritus [Recovering/Resolving]
  - Pruritus [Recovering/Resolving]
  - Face injury [Recovering/Resolving]
  - Ill-defined disorder [Not Recovered/Not Resolved]
  - Quality of life decreased [Unknown]
  - Disability [Not Recovered/Not Resolved]
  - Eye irritation [Not Recovered/Not Resolved]
  - Pain in extremity [Not Recovered/Not Resolved]

NARRATIVE: CASE EVENT DATE: 20180314
